FAERS Safety Report 15056698 (Version 6)
Quarter: 2019Q2

REPORT INFORMATION
  Report Type: Spontaneous
  Country: US (occurrence: US)
  Receive Date: 20180623
  Receipt Date: 20190401
  Transmission Date: 20190711
  Serious: Yes (Hospitalization)
  Sender: FDA-Public Use
  Company Number: US-OTSUKA-2018_017043

PATIENT
  Age: 40 Year
  Sex: Female
  Weight: 75 kg

DRUGS (12)
  1. ABILIFY [Suspect]
     Active Substance: ARIPIPRAZOLE
     Indication: PSYCHOTIC DISORDER
     Dosage: 10 MG, QD
     Route: 065
     Dates: start: 2010, end: 20160501
  2. ZYPREXA [Concomitant]
     Active Substance: OLANZAPINE
     Indication: PRODUCT USED FOR UNKNOWN INDICATION
     Dosage: 1 DF, QD
     Route: 048
  3. DEPAKOTE [Concomitant]
     Active Substance: DIVALPROEX SODIUM
     Indication: PRODUCT USED FOR UNKNOWN INDICATION
     Dosage: UNK
     Route: 065
  4. ABILIFY [Suspect]
     Active Substance: ARIPIPRAZOLE
     Indication: BIPOLAR DISORDER
     Dosage: UNK
     Route: 065
     Dates: start: 20100201, end: 20100426
  5. ABILIFY [Suspect]
     Active Substance: ARIPIPRAZOLE
     Indication: SCHIZOPHRENIA
     Dosage: 5 MG, QD
     Route: 065
     Dates: start: 20070101
  6. ABILIFY [Suspect]
     Active Substance: ARIPIPRAZOLE
     Indication: POST-TRAUMATIC STRESS DISORDER
  7. ABILIFY [Suspect]
     Active Substance: ARIPIPRAZOLE
     Indication: OBSESSIVE-COMPULSIVE DISORDER
  8. ABILIFY MAINTENA [Suspect]
     Active Substance: ARIPIPRAZOLE
     Indication: PRODUCT USED FOR UNKNOWN INDICATION
     Dosage: 400 MG, EVERY 4 WEEKS
     Route: 030
     Dates: start: 20151218, end: 20161024
  9. SERTRALINE HCL [Concomitant]
     Active Substance: SERTRALINE HYDROCHLORIDE
     Indication: PRODUCT USED FOR UNKNOWN INDICATION
     Dosage: ONE AND HALF DF, QD
     Route: 048
     Dates: start: 20160722
  10. LAMOTRIGINE. [Concomitant]
     Active Substance: LAMOTRIGINE
     Indication: PRODUCT USED FOR UNKNOWN INDICATION
     Dosage: 1 DF, QD (EVERY BEDTIME)
     Route: 048
     Dates: start: 20160722
  11. PRAZOSIN HCL [Concomitant]
     Active Substance: PRAZOSIN HYDROCHLORIDE
     Indication: PRODUCT USED FOR UNKNOWN INDICATION
     Dosage: 1 DF, QD
     Route: 048
     Dates: start: 20160722
  12. LURASIDONE HCL [Concomitant]
     Active Substance: LURASIDONE
     Indication: PRODUCT USED FOR UNKNOWN INDICATION
     Dosage: 1 DF, QD
     Route: 048
     Dates: start: 20161220

REACTIONS (37)
  - Anhedonia [Unknown]
  - Feeling abnormal [Unknown]
  - Blood chloride increased [Unknown]
  - Blood glucose decreased [Unknown]
  - Speech disorder [Unknown]
  - Mental disorder [Unknown]
  - Agitation [Unknown]
  - Urinary sediment present [Unknown]
  - Anxiety [Unknown]
  - Loss of employment [Unknown]
  - Tearfulness [Unknown]
  - Low density lipoprotein increased [Unknown]
  - Pneumonia [Unknown]
  - Delusion [Unknown]
  - Economic problem [Unknown]
  - High density lipoprotein decreased [Unknown]
  - Blood sodium increased [Unknown]
  - Vomiting [Unknown]
  - Nausea [Unknown]
  - Injury [Unknown]
  - Tangentiality [Unknown]
  - White blood cells urine positive [Unknown]
  - Legal problem [Unknown]
  - Product use in unapproved indication [Unknown]
  - Condition aggravated [Unknown]
  - Pain [Unknown]
  - Compulsive sexual behaviour [Recovered/Resolved]
  - Eating disorder [Recovered/Resolved]
  - Theft [Recovered/Resolved]
  - Paranoia [Unknown]
  - Depressed mood [Unknown]
  - Shoplifting [Recovered/Resolved]
  - Condition aggravated [Recovered/Resolved]
  - Emotional distress [Unknown]
  - Nightmare [Unknown]
  - Gambling disorder [Recovered/Resolved]
  - Compulsive shopping [Recovered/Resolved]

NARRATIVE: CASE EVENT DATE: 2007
